FAERS Safety Report 5661335-8 (Version None)
Quarter: 2008Q1

REPORT INFORMATION
  Report Type: 
  Country: None (occurrence: None)
  Receive Date: 20080312
  Receipt Date: 20080307
  Transmission Date: 20080703
  Serious: Yes (Hospitalization)
  Sender: FDA-Public Use
  Company Number: US-ASTRAZENECA-2008UW04699

PATIENT
  Age: 42 Year
  Sex: Male

DRUGS (5)
  1. CRESTOR [Suspect]
     Route: 048
  2. TOPROL-XL [Suspect]
     Route: 048
  3. ZETIA [Suspect]
     Route: 048
  4. BENICAR [Suspect]
     Dosage: 40/25MG
  5. LOTREL [Suspect]
     Dosage: 10/40MG

REACTIONS (5)
  - CHILLS [None]
  - HAEMATURIA [None]
  - MYALGIA [None]
  - PYREXIA [None]
  - VIRAL INFECTION [None]
